FAERS Safety Report 9163295 (Version 1)
Quarter: 2013Q1

REPORT INFORMATION
  Report Type: Spontaneous
  Country: MY (occurrence: MY)
  Receive Date: 20130314
  Receipt Date: 20130314
  Transmission Date: 20140127
  Serious: Yes (Other)
  Sender: FDA-Public Use
  Company Number: MY-VIIV HEALTHCARE LIMITED-B0874690A

PATIENT
  Age: 49 Year
  Sex: Male

DRUGS (2)
  1. COMBIVIR [Suspect]
     Indication: RETROVIRAL INFECTION
     Dosage: 2UNIT PER DAY
     Route: 048
  2. EPILIM [Suspect]
     Indication: EPILEPSY
     Dosage: 400MG PER DAY
     Route: 048

REACTIONS (1)
  - Pancytopenia [Unknown]
